FAERS Safety Report 16289667 (Version 1)
Quarter: 2019Q2

REPORT INFORMATION
  Report Type: Spontaneous
  Country: CA (occurrence: CA)
  Receive Date: 20190509
  Receipt Date: 20190509
  Transmission Date: 20190711
  Serious: Yes (Hospitalization)
  Sender: FDA-Public Use
  Company Number: CA-CELGENEUS-CAN-20190500323

PATIENT
  Age: 69 Year
  Sex: Female

DRUGS (1)
  1. POMALYST [Suspect]
     Active Substance: POMALIDOMIDE
     Indication: PLASMA CELL MYELOMA
     Dosage: 3 MILLIGRAM
     Route: 048
     Dates: start: 20170524

REACTIONS (6)
  - Haemoglobin decreased [Unknown]
  - Fall [Unknown]
  - Fluid imbalance [Unknown]
  - Dyspnoea [Unknown]
  - Confusional state [Unknown]
  - Cholecystitis infective [Unknown]

NARRATIVE: CASE EVENT DATE: 201903
